FAERS Safety Report 8014717-3 (Version None)
Quarter: 2011Q4

REPORT INFORMATION
  Report Type: 
  Country: None (occurrence: None)
  Receive Date: 20111229
  Receipt Date: 20111221
  Transmission Date: 20120403
  Serious: Yes (Hospitalization)
  Sender: FDA-Public Use
  Company Number: BR-ABBOTT-11P-020-0718508-00

PATIENT
  Sex: Female
  Weight: 59 kg

DRUGS (9)
  1. FOLIC ACID [Concomitant]
     Indication: ANAEMIA PROPHYLAXIS
     Route: 048
     Dates: end: 20110201
  2. POTASSIUM LOSARTAN [Concomitant]
     Indication: HYPERTENSION
     Route: 048
     Dates: start: 20110201, end: 20110201
  3. ARAVA [Concomitant]
     Indication: RHEUMATOID ARTHRITIS
     Route: 048
     Dates: end: 20110201
  4. HUMIRA [Suspect]
     Indication: RHEUMATOID ARTHRITIS
     Route: 058
     Dates: end: 20100101
  5. HUMIRA [Suspect]
     Dates: start: 20110501
  6. ACETYLCYSTEINE [Suspect]
     Indication: PNEUMONIA
     Route: 048
     Dates: start: 20110201
  7. HYDROCHLOROTHIAZIDE [Concomitant]
     Indication: HYPERTENSION
     Route: 048
     Dates: end: 20110201
  8. PREDNISONE TAB [Concomitant]
     Indication: RHEUMATOID ARTHRITIS
     Route: 048
  9. CAPTOPRIL [Concomitant]
     Indication: BLOOD PRESSURE
     Route: 048
     Dates: end: 20110201

REACTIONS (4)
  - PYREXIA [None]
  - EMPHYSEMA [None]
  - COUGH [None]
  - PNEUMONIA [None]
